FAERS Safety Report 5075826-4 (Version None)
Quarter: 2006Q3

REPORT INFORMATION
  Report Type: 
  Country: None (occurrence: None)
  Receive Date: 20060809
  Receipt Date: 20060803
  Transmission Date: 20061208
  Serious: Yes (Hospitalization)
  Sender: FDA-Public Use
  Company Number: FR-GLAXOSMITHKLINE-B0433503A

PATIENT
  Age: 51 Year
  Sex: Male
  Weight: 90 kg

DRUGS (14)
  1. FORTUM [Suspect]
     Dosage: 1G PER DAY
     Route: 042
     Dates: start: 20060628
  2. METRONIDAZOLE [Suspect]
     Dosage: 1G PER DAY
     Route: 042
     Dates: start: 20060630, end: 20060701
  3. FLAGYL [Concomitant]
     Dosage: 1.5G PER DAY
     Route: 048
     Dates: start: 20060702
  4. TENORMIN [Concomitant]
     Route: 065
  5. TRIATEC [Concomitant]
     Route: 065
  6. EUPRESSYL [Concomitant]
     Route: 065
     Dates: end: 20060702
  7. EUPANTOL [Concomitant]
     Route: 065
  8. BRICANYL [Concomitant]
     Route: 065
  9. ATROVENT [Concomitant]
     Route: 065
  10. SODIUM HEPARIN [Concomitant]
     Route: 065
     Dates: end: 20060703
  11. CALCIPARINE [Concomitant]
     Route: 065
  12. VANCOMYCIN [Concomitant]
     Route: 065
  13. AMIKLIN [Concomitant]
     Route: 065
  14. ACETAMINOPHEN [Concomitant]
     Route: 065

REACTIONS (2)
  - PURPURA [None]
  - RASH MACULO-PAPULAR [None]
